FAERS Safety Report 14669763 (Version 1)
Quarter: 2018Q1

REPORT INFORMATION
  Report Type: Spontaneous
  Country: None (occurrence: US)
  Receive Date: 20180322
  Receipt Date: 20180322
  Transmission Date: 20180509
  Serious: No
  Sender: FDA-Public Use
  Company Number: US-MEDAC PHARMA, INC.-2044324

PATIENT
  Age: 52 Year
  Sex: Male
  Weight: 109.09 kg

DRUGS (2)
  1. NAPROXEN. [Concomitant]
     Active Substance: NAPROXEN
  2. RASUVO [Suspect]
     Active Substance: METHOTREXATE SODIUM
     Indication: RHEUMATOID ARTHRITIS
     Route: 058

REACTIONS (5)
  - Injection site erythema [Unknown]
  - Injection site erosion [Unknown]
  - Injection site scab [Unknown]
  - Injection site pruritus [Unknown]
  - Device issue [Unknown]
